FAERS Safety Report 5637480-X (Version None)
Quarter: 2008Q1

REPORT INFORMATION
  Report Type: 
  Country: None (occurrence: None)
  Receive Date: 20080225
  Receipt Date: 20080213
  Transmission Date: 20080703
  Serious: Yes (Hospitalization)
  Sender: FDA-Public Use
  Company Number: IT-PFIZER INC-2008011053

PATIENT
  Sex: Female

DRUGS (2)
  1. ZITHROMAX [Suspect]
     Indication: PYREXIA
     Dosage: TEXT:1 UNIT DOSE
     Dates: start: 20080119, end: 20080121
  2. OKI [Suspect]
     Indication: PYREXIA
     Dosage: TEXT:1 UNIT DOSE
     Dates: start: 20080119, end: 20080121

REACTIONS (2)
  - METRORRHAGIA [None]
  - PANCYTOPENIA [None]
